FAERS Safety Report 18175957 (Version 1)
Quarter: 2020Q3

REPORT INFORMATION
  Report Type: Spontaneous
  Country: JP (occurrence: JP)
  Receive Date: 20200820
  Receipt Date: 20200820
  Transmission Date: 20201103
  Serious: Yes (Life-Threatening, Hospitalization)
  Sender: FDA-Public Use
  Company Number: JP-TEVA-2009B-03682

PATIENT
  Age: 67 Year
  Sex: Male

DRUGS (2)
  1. IRINOTECAN (UNKNOWN) [Suspect]
     Active Substance: IRINOTECAN
     Indication: COLON CANCER METASTATIC
     Route: 065
  2. TS?1 [Suspect]
     Active Substance: GIMERACIL\OTERACIL\TEGAFUR
     Indication: COLON CANCER METASTATIC
     Route: 065

REACTIONS (5)
  - Dyskinesia [Recovering/Resolving]
  - Bacterial infection [Recovering/Resolving]
  - Escherichia infection [Recovering/Resolving]
  - Necrotising fasciitis [Recovering/Resolving]
  - Retroperitoneal abscess [Recovering/Resolving]
